FAERS Safety Report 8280134-4 (Version None)
Quarter: 2012Q2

REPORT INFORMATION
  Report Type: 
  Country: None (occurrence: None)
  Receive Date: 20120412
  Receipt Date: 20120404
  Transmission Date: 20120825
  Serious: Yes (Hospitalization)
  Sender: FDA-Public Use
  Company Number: DE-GILEAD-2012-0052229

PATIENT
  Sex: Female

DRUGS (11)
  1. URSO FALK [Concomitant]
     Dosage: 1000 MG, UNK
  2. CAYSTON [Suspect]
     Indication: CYSTIC FIBROSIS
     Dosage: 75 MG, CYCLICAL
     Route: 055
  3. KREON                              /00014701/ [Concomitant]
  4. ACC                                /00082801/ [Concomitant]
     Dosage: 600 MG, UNK
  5. MUCOCLEAR [Concomitant]
     Route: 055
  6. VITAMIN A W/VITAMIN D/VITAMIN E/VITAMIN K/ [Concomitant]
  7. PULMOZYME [Concomitant]
     Route: 055
  8. ALBUTEROL [Concomitant]
     Route: 055
  9. FLUTICASONE PROPIONATE/SALMETEROL [Concomitant]
     Route: 055
  10. SELEN [Concomitant]
  11. AZITHROMYCIN [Concomitant]
     Dosage: 1500 MG, Q1WK

REACTIONS (8)
  - LIP SWELLING [None]
  - HYPERSENSITIVITY [None]
  - BODY TEMPERATURE INCREASED [None]
  - URTICARIA [None]
  - DYSPNOEA [None]
  - THROAT TIGHTNESS [None]
  - PRURITUS [None]
  - CHEST DISCOMFORT [None]
